FAERS Safety Report 5846090-0 (Version None)
Quarter: 2008Q3

REPORT INFORMATION
  Report Type: 
  Country: None (occurrence: None)
  Receive Date: 20080814
  Receipt Date: 20080806
  Transmission Date: 20090109
  Serious: Yes (Hospitalization, Other)
  Sender: FDA-Public Use
  Company Number: JP-PFIZER INC-2008057038

PATIENT
  Sex: Female

DRUGS (4)
  1. NORVASC [Suspect]
     Indication: HYPERTENSION
     Dosage: DAILY DOSE:5MG-TEXT:5 MG-FREQ:ONCE DAILY
     Route: 048
  2. ALMYLAR [Suspect]
     Indication: HYPERTENSION
     Route: 048
  3. TOLTERODINE TARTRATE [Concomitant]
     Route: 048
  4. PROPIVERINE HYDROCHLORIDE [Concomitant]
     Route: 048
     Dates: start: 20071210, end: 20080525

REACTIONS (3)
  - PNEUMOTHORAX [None]
  - POLYP [None]
  - THROMBOCYTOPENIA [None]
